FAERS Safety Report 7033755-0 (Version None)
Quarter: 2010Q4

REPORT INFORMATION
  Report Type: 
  Country: None (occurrence: None)
  Receive Date: 20101007
  Receipt Date: 20100921
  Transmission Date: 20110411
  Serious: Yes (Other)
  Sender: FDA-Public Use
  Company Number: PHHY2010BR64915

PATIENT
  Age: 60 Year
  Sex: Male

DRUGS (10)
  1. METFORMIN [Suspect]
     Indication: HYPERGLYCAEMIA
     Dosage: 500 MG
  2. METFORMIN [Suspect]
     Dosage: 850 MG
  3. VALSARTAN [Suspect]
     Indication: HYPERTENSION
     Dosage: 80 MG/ DAY
  4. METOPROLOL TARTRATE [Suspect]
     Indication: HYPERTENSION
     Dosage: 50 MG/DAY
  5. AMLODIPINE [Concomitant]
     Indication: HYPERTENSION
     Dosage: 10 MG
  6. ROSUVASTATIN [Concomitant]
     Indication: DYSLIPIDAEMIA
     Dosage: 10 MG/DAY
  7. GLIMEPIRIDE [Concomitant]
     Indication: HYPERGLYCAEMIA
     Dosage: 8 MG/ DAY
  8. ASPIRIN [Concomitant]
     Dosage: 100 MG
  9. CITALOPRAM HYDROBROMIDE [Concomitant]
  10. OMEPRAZOLE [Concomitant]
     Dosage: 40 MG

REACTIONS (10)
  - ABDOMINAL DISTENSION [None]
  - ABDOMINAL PAIN [None]
  - BLOOD GLUCOSE ABNORMAL [None]
  - BLOOD PRESSURE INADEQUATELY CONTROLLED [None]
  - COLON ADENOMA [None]
  - DRUG INEFFECTIVE [None]
  - MICROCYTIC ANAEMIA [None]
  - OEDEMA PERIPHERAL [None]
  - PULSE ABNORMAL [None]
  - SKIN ULCER [None]
